FAERS Safety Report 5097233-0 (Version None)
Quarter: 2006Q3

REPORT INFORMATION
  Report Type: 
  Country: None (occurrence: None)
  Receive Date: 20060901
  Receipt Date: 20060822
  Transmission Date: 20061208
  Serious: Yes (Hospitalization, Other)
  Sender: FDA-Public Use
  Company Number: USA-2006-0024955

PATIENT
  Age: 28 Year
  Sex: Male

DRUGS (2)
  1. OXYCODONE HCL [Suspect]
     Indication: DRUG ABUSER
  2. COCAINE (COCAINE) [Suspect]
     Indication: DRUG ABUSER

REACTIONS (4)
  - INJURY [None]
  - LOWER LIMB FRACTURE [None]
  - ROAD TRAFFIC ACCIDENT [None]
  - SUBSTANCE ABUSE [None]
